FAERS Safety Report 13746800 (Version 1)
Quarter: 2017Q3

REPORT INFORMATION
  Report Type: Report from Study
  Country: US (occurrence: US)
  Receive Date: 20170712
  Receipt Date: 20170712
  Transmission Date: 20171127
  Serious: Yes (Hospitalization)
  Sender: FDA-Public Use
  Company Number: US-ACTELION-A-NJ2015-125990

PATIENT
  Age: 66 Year
  Sex: Female
  Weight: 154.2 kg

DRUGS (3)
  1. COUMADIN [Concomitant]
     Active Substance: WARFARIN SODIUM
  2. OPSUMIT [Suspect]
     Active Substance: MACITENTAN
     Indication: PULMONARY ARTERIAL HYPERTENSION
     Dosage: 10 MG, QD
     Route: 048
  3. DILTIAZEM. [Concomitant]
     Active Substance: DILTIAZEM

REACTIONS (12)
  - Headache [Unknown]
  - Syncope [Unknown]
  - Drug dose omission [Unknown]
  - Panic attack [Unknown]
  - Dyspnoea exertional [Unknown]
  - Pneumonia [Unknown]
  - Fluid retention [Unknown]
  - Cardiac pacemaker adjustment [Unknown]
  - Therapy non-responder [Unknown]
  - Heart rate increased [Unknown]
  - Dyspnoea [Unknown]
  - Dizziness [Unknown]

NARRATIVE: CASE EVENT DATE: 20151012
